FAERS Safety Report 6302329-9 (Version None)
Quarter: 2009Q3

REPORT INFORMATION
  Report Type: 
  Country: None (occurrence: None)
  Receive Date: 20090810
  Receipt Date: 20071003
  Transmission Date: 20100115
  Serious: Yes (Other)
  Sender: FDA-Public Use
  Company Number: US-ASTRAZENECA-2006UW21898

PATIENT
  Age: 16620 Day
  Sex: Female
  Weight: 104.3 kg

DRUGS (22)
  1. SEROQUEL [Suspect]
     Indication: DEPRESSION
     Route: 048
     Dates: end: 20040101
  2. SEROQUEL [Suspect]
     Indication: BIPOLAR DISORDER
     Route: 048
     Dates: end: 20040101
  3. SEROQUEL [Suspect]
     Indication: SCHIZOPHRENIA
     Route: 048
     Dates: end: 20040101
  4. SEROQUEL [Suspect]
     Route: 048
     Dates: start: 20060913
  5. SEROQUEL [Suspect]
     Route: 048
     Dates: start: 20060913
  6. SEROQUEL [Suspect]
     Route: 048
     Dates: start: 20060913
  7. CYMBALTA [Concomitant]
     Indication: DEPRESSION
     Dates: start: 20060913
  8. NEURONTIN [Concomitant]
     Indication: NEURALGIA
     Dates: start: 20060913
  9. CLIMARA [Concomitant]
     Dates: start: 20060918
  10. DITROPAN [Concomitant]
     Dates: start: 20060918
  11. TARKA [Concomitant]
     Dates: start: 20060918
  12. EFFEXOR [Concomitant]
     Dates: start: 20060918
  13. WELLBUTRIN [Concomitant]
     Dates: start: 20060918
  14. LEXAPRO [Concomitant]
     Indication: ANXIETY
     Dates: start: 20070620
  15. TORSEMIDE [Concomitant]
     Dates: start: 20070620
  16. VESICARE [Concomitant]
     Indication: CYSTITIS
     Dates: start: 20070620
  17. TRIMETHOPRIM [Concomitant]
     Dates: start: 20070620
  18. FUROSEMIDE [Concomitant]
     Dates: start: 20070620
  19. IMIPRAMINE [Concomitant]
     Indication: ANXIETY
     Dates: start: 20070620
  20. ATENOLOL [Concomitant]
     Indication: CARDIAC DISORDER
     Dates: start: 20070620
  21. REQUIP [Concomitant]
     Indication: RESTLESS LEGS SYNDROME
     Dates: start: 20070620
  22. TOPAMAX [Concomitant]
     Indication: MIGRAINE
     Dosage: STRENGTH: 50 MG TO 75 MG
     Dates: start: 20070620

REACTIONS (2)
  - DIABETES MELLITUS [None]
  - NEUROPATHY PERIPHERAL [None]
